FAERS Safety Report 8125693-7 (Version None)
Quarter: 2012Q1

REPORT INFORMATION
  Report Type: 
  Country: None (occurrence: None)
  Receive Date: 20120209
  Receipt Date: 20120130
  Transmission Date: 20120608
  Serious: Yes (Other)
  Sender: FDA-Public Use
  Company Number: US-COVIDIEN/TYCO HEALTHCARE/MALLINCKRODT-T201200532

PATIENT
  Age: 42 Year
  Sex: Female

DRUGS (2)
  1. EXALGO [Suspect]
     Dosage: 60 MG, SINGLE
  2. ETHANOL [Suspect]
     Dosage: 9 UNK, UNK

REACTIONS (1)
  - OVERDOSE [None]
